FAERS Safety Report 23343593 (Version 1)
Quarter: 2023Q4

REPORT INFORMATION
  Report Type: Report from Study
  Country: US (occurrence: US)
  Receive Date: 20231227
  Receipt Date: 20231227
  Transmission Date: 20240110
  Serious: Yes (Other)
  Sender: FDA-Public Use
  Company Number: US-INCYTE CORPORATION-2023IN013314

PATIENT

DRUGS (1)
  1. JAKAFI [Suspect]
     Active Substance: RUXOLITINIB
     Dosage: 10 MILLIGRAM, BID
     Route: 048
     Dates: end: 20231016

REACTIONS (5)
  - Gastric ulcer perforation [Unknown]
  - Hip fracture [Unknown]
  - Illness [Unknown]
  - Fall [Unknown]
  - Concussion [Unknown]
